FAERS Safety Report 21894615 (Version 1)
Quarter: 2023Q1

REPORT INFORMATION
  Report Type: Spontaneous
  Country: US (occurrence: US)
  Receive Date: 20230122
  Receipt Date: 20230122
  Transmission Date: 20230418
  Serious: No
  Sender: FDA-Public Use
  Company Number: US-drreddys-SPO/USA/23/0159753

PATIENT
  Age: 78 Year
  Sex: Female

DRUGS (24)
  1. LENALIDOMIDE [Suspect]
     Active Substance: LENALIDOMIDE
     Indication: Plasma cell myeloma
     Route: 048
     Dates: start: 20221107
  2. ATORVASTATIN [Concomitant]
     Active Substance: ATORVASTATIN
     Indication: Product used for unknown indication
  3. IRON [Concomitant]
     Active Substance: IRON
     Indication: Product used for unknown indication
  4. ALBUTEROL [Concomitant]
     Active Substance: ALBUTEROL
     Indication: Product used for unknown indication
  5. CALCIUM\VITAMIN D [Concomitant]
     Active Substance: CALCIUM\VITAMIN D
     Indication: Product used for unknown indication
     Dosage: 315-200MG
  6. CINNAMON [Concomitant]
     Active Substance: CINNAMON
     Indication: Product used for unknown indication
  7. CLARITIN [Concomitant]
     Active Substance: LORATADINE
     Indication: Product used for unknown indication
  8. CYMBALTA [Concomitant]
     Active Substance: DULOXETINE HYDROCHLORIDE
     Indication: Product used for unknown indication
  9. ELIQUIS [Concomitant]
     Active Substance: APIXABAN
     Indication: Product used for unknown indication
  10. GARLIC [Concomitant]
     Active Substance: GARLIC
     Indication: Product used for unknown indication
  11. LANTUS [Concomitant]
     Active Substance: INSULIN GLARGINE
     Indication: Product used for unknown indication
     Dosage: SOL 100UNIT/ML
  12. LASIX [Concomitant]
     Active Substance: FUROSEMIDE
     Indication: Product used for unknown indication
  13. MAGNESIUM [Concomitant]
     Active Substance: MAGNESIUM
     Indication: Product used for unknown indication
  14. POTASS UM CH [Concomitant]
     Indication: Product used for unknown indication
  15. PROBIOTIC TBE [Concomitant]
     Indication: Product used for unknown indication
  16. PROTONIX PAC [Concomitant]
     Indication: Product used for unknown indication
  17. PULMICORT SUS [Concomitant]
     Indication: Product used for unknown indication
     Dosage: 0.25MG/2ML
  18. SINGULAIR [Concomitant]
     Active Substance: MONTELUKAST SODIUM
     Indication: Product used for unknown indication
  19. TYLENOL [Concomitant]
     Active Substance: ACETAMINOPHEN
     Indication: Product used for unknown indication
  20. VITAMIN B12 [Concomitant]
     Active Substance: CYANOCOBALAMIN
     Indication: Product used for unknown indication
     Dosage: 3000MCG/M
  21. VITAMIN C [Concomitant]
     Active Substance: ASCORBIC ACID
     Indication: Product used for unknown indication
  22. ASPIRIN [Concomitant]
     Active Substance: ASPIRIN
     Indication: Product used for unknown indication
  23. SENNA [Concomitant]
     Active Substance: SENNA LEAF\SENNOSIDES\SENNOSIDES A AND B
     Indication: Product used for unknown indication
  24. CALCIUM [Concomitant]
     Active Substance: CALCIUM
     Indication: Product used for unknown indication

REACTIONS (1)
  - Blood glucose decreased [Not Recovered/Not Resolved]
